FAERS Safety Report 24827085 (Version 1)
Quarter: 2025Q1

REPORT INFORMATION
  Report Type: Spontaneous
  Country: CA (occurrence: CA)
  Receive Date: 20250109
  Receipt Date: 20250109
  Transmission Date: 20250409
  Serious: Yes (Congenital Anomaly)
  Sender: SANDOZ
  Company Number: CA-SANDOZ-SDZ2025CA001239

PATIENT

DRUGS (1)
  1. ADALIMUMAB [Suspect]
     Active Substance: ADALIMUMAB
     Indication: Inflammatory bowel disease
     Dosage: 40 MG, Q2W
     Route: 064

REACTIONS (3)
  - Multiple congenital abnormalities [Unknown]
  - Off label use [Unknown]
  - Foetal exposure during pregnancy [Unknown]
